FAERS Safety Report 8902618 (Version 1)
Quarter: 2012Q4

REPORT INFORMATION
  Report Type: 
  Country: DE (occurrence: DE)
  Receive Date: 20121112
  Receipt Date: 20121112
  Transmission Date: 20130627
  Serious: Yes (Death, Hospitalization, Other)
  Sender: FDA-Public Use
  Company Number: GXKR2012DE003426

PATIENT

DRUGS (6)
  1. HALOPERIDOL [Suspect]
     Indication: PSYCHOTIC DISORDER
     Dosage: 10 mg, UNK
     Route: 048
  2. ZOPICLONE [Suspect]
     Indication: INITIAL INSOMNIA
     Dosage: UNK UKN, UNK
     Route: 048
     Dates: start: 20111120, end: 20111120
  3. SEROQUEL [Suspect]
     Indication: PSYCHOTIC DISORDER
     Dosage: up to 1000mg/day
     Route: 048
     Dates: end: 20111107
  4. ZYPREXA [Suspect]
     Indication: PSYCHOTIC DISORDER
  5. DIAZEPAM [Suspect]
     Indication: PSYCHOTIC DISORDER
     Route: 048
  6. TAVOR (LORAZEPAM) [Suspect]
     Indication: PSYCHOTIC DISORDER
     Dosage: 1-4mg/day
     Route: 048

REACTIONS (9)
  - Syncope [Fatal]
  - Suicide attempt [Unknown]
  - Brain death [Fatal]
  - Dizziness [Fatal]
  - Vomiting [Fatal]
  - Abdominal discomfort [Fatal]
  - Tachycardia [Fatal]
  - Electrocardiogram QT prolonged [Fatal]
  - Bundle branch block right [Fatal]
